FAERS Safety Report 25391259 (Version 1)
Quarter: 2025Q2

REPORT INFORMATION
  Report Type: Spontaneous
  Country: US (occurrence: US)
  Receive Date: 20250603
  Receipt Date: 20250603
  Transmission Date: 20250716
  Serious: Yes (Hospitalization)
  Sender: DENDREON PHARMACEUTICALS LLC
  Company Number: US-DENDREON PHARMACEUTICAL LLC-2025DEN000026

PATIENT

DRUGS (13)
  1. PROVENGE [Suspect]
     Active Substance: SIPULEUCEL-T
     Indication: Prostate cancer metastatic
     Route: 042
     Dates: start: 20250109, end: 20250109
  2. PROVENGE [Suspect]
     Active Substance: SIPULEUCEL-T
     Route: 042
     Dates: start: 20250123, end: 20250123
  3. ELIGARD [Concomitant]
     Active Substance: LEUPROLIDE ACETATE
     Indication: Prostate cancer metastatic
  4. LOSARTAN [Concomitant]
     Active Substance: LOSARTAN
     Indication: Hypertension
  5. ATENOLOL [Concomitant]
     Active Substance: ATENOLOL
     Indication: Hypertension
  6. ATORVASTATIN [Concomitant]
     Active Substance: ATORVASTATIN
     Indication: Hyperlipidaemia
  7. FUROSEMIDE [Concomitant]
     Active Substance: FUROSEMIDE
     Indication: Hypertension
  8. GLIPIZIDE [Concomitant]
     Active Substance: GLIPIZIDE
     Indication: Diabetes mellitus
  9. METFORMIN [Concomitant]
     Active Substance: METFORMIN HYDROCHLORIDE
     Indication: Diabetes mellitus
  10. PIOGLITAZONE [Concomitant]
     Active Substance: PIOGLITAZONE
     Indication: Diabetes mellitus
  11. TYLENOL [Concomitant]
     Active Substance: ACETAMINOPHEN
     Indication: Premedication
     Route: 048
     Dates: start: 20250123, end: 20250123
  12. BENADRYL [Concomitant]
     Active Substance: DIPHENHYDRAMINE HYDROCHLORIDE
     Indication: Premedication
     Route: 048
     Dates: start: 20250123, end: 20250123
  13. FAMOTIDINE [Concomitant]
     Active Substance: FAMOTIDINE
     Indication: Premedication
     Route: 048

REACTIONS (2)
  - Infusion related reaction [Recovering/Resolving]
  - Incorrect dose administered [Recovered/Resolved]

NARRATIVE: CASE EVENT DATE: 20250123
